FAERS Safety Report 8382573 (Version 2)
Quarter: 2012Q4

REPORT INFORMATION
  Report Type: 
  Country: FR (occurrence: FR)
  Receive Date: 20120201
  Receipt Date: 20120829
  Transmission Date: 20130627
  Serious: Yes (Death, Other)
  Sender: FDA-Public Use
  Company Number: FR-CELGENEUS-056-21880-12011847

PATIENT

DRUGS (4)
  1. REVLIMID [Suspect]
     Indication: MULTIPLE MYELOMA
     Dosage: 25 Milligram
     Route: 048
  2. REVLIMID [Suspect]
     Dosage: 15 Milligram
     Route: 048
  3. DEXAMETHASONE [Concomitant]
     Indication: MULTIPLE MYELOMA
     Dosage: 20 Milligram
     Route: 065
  4. ASPIRINE [Concomitant]
     Indication: DVT PROPHYLAXIS
     Route: 065

REACTIONS (6)
  - Plasma cell myeloma [Fatal]
  - Infection [Fatal]
  - Myocardial infarction [Fatal]
  - Thrombosis [Unknown]
  - Pancytopenia [Unknown]
  - Toxicity to various agents [Unknown]
